FAERS Safety Report 7644529-1 (Version None)
Quarter: 2011Q3

REPORT INFORMATION
  Report Type: 
  Country: None (occurrence: None)
  Receive Date: 20110729
  Receipt Date: 20110719
  Transmission Date: 20111222
  Serious: Yes (Hospitalization)
  Sender: FDA-Public Use
  Company Number: US-JNJFOC-20110709250

PATIENT
  Age: 36 Year
  Sex: Female
  Weight: 72.58 kg

DRUGS (5)
  1. DEPAKOTE [Concomitant]
     Indication: CONVULSION
     Dosage: DAILY FOR YEARS
     Route: 065
  2. MINOXIDIL EXTRA STRENGTH (FOR MEN) [Suspect]
     Indication: ALOPECIA
     Dosage: HALF CAPFUL, ONCE TO TWICE A DAY BUT NOT EVERY DAY
     Route: 061
     Dates: start: 20101101, end: 20110719
  3. AMBIEN [Concomitant]
     Indication: SLEEP DISORDER
     Dosage: DAILY
     Route: 065
     Dates: start: 20110601
  4. GEODON [Concomitant]
     Indication: PSYCHOTIC DISORDER
     Dosage: YEARS AGO, DAILY
     Route: 065
  5. MINOXIDIL EXTRA STRENGTH (FOR MEN) [Suspect]
     Route: 061

REACTIONS (2)
  - MENTAL DISORDER [None]
  - WRONG DRUG ADMINISTERED [None]
